FAERS Safety Report 22846189 (Version 2)
Quarter: 2023Q4

REPORT INFORMATION
  Report Type: Report from Study
  Country: US (occurrence: US)
  Receive Date: 20230821
  Receipt Date: 20231122
  Transmission Date: 20240110
  Serious: Yes (Death)
  Sender: FDA-Public Use
  Company Number: US-JNJFOC-20230843083

PATIENT
  Age: 46 Year
  Sex: Male

DRUGS (1)
  1. CILTACABTAGENE AUTOLEUCEL [Suspect]
     Active Substance: CILTACABTAGENE AUTOLEUCEL
     Indication: Plasma cell myeloma
     Dosage: TOTAL NUMBER OF CELLS ADMINISTERED: 42.18, TOTAL CELLS EXPONENT VALUE:6 (42.18  X 10^6)
     Route: 042
     Dates: start: 2023, end: 2023

REACTIONS (1)
  - Cytokine release syndrome [Fatal]
